FAERS Safety Report 17762466 (Version 2)
Quarter: 2020Q2

REPORT INFORMATION
  Report Type: Report from Study
  Country: ES (occurrence: ES)
  Receive Date: 20200508
  Receipt Date: 20200605
  Transmission Date: 20200714
  Serious: Yes (Hospitalization)
  Sender: FDA-Public Use
  Company Number: ES-PFIZER INC-2020178865

PATIENT
  Age: 67 Year
  Sex: Male
  Weight: 65.7 kg

DRUGS (5)
  1. COZAAR [Concomitant]
     Active Substance: LOSARTAN POTASSIUM
     Dosage: UNK
     Dates: start: 20191223
  2. CAPTOPRIL. [Concomitant]
     Active Substance: CAPTOPRIL
     Dosage: UNK
     Dates: start: 2010
  3. LOPERAMIDE HYDROCHLORIDE. [Concomitant]
     Active Substance: LOPERAMIDE HYDROCHLORIDE
     Dosage: UNK
     Dates: start: 20200112
  4. SUNITINIB MALATE. [Suspect]
     Active Substance: SUNITINIB MALATE
     Indication: GASTROINTESTINAL STROMAL TUMOUR
     Dosage: 50 MG, 1X/DAY
     Route: 048
     Dates: start: 20191219, end: 20200328
  5. HYDROCHLOROTHIAZIDE. [Concomitant]
     Active Substance: HYDROCHLOROTHIAZIDE
     Dosage: UNK
     Dates: start: 20191223

REACTIONS (1)
  - Hypertensive crisis [Not Recovered/Not Resolved]

NARRATIVE: CASE EVENT DATE: 20200328
